FAERS Safety Report 23738764 (Version 2)
Quarter: 2025Q4

REPORT INFORMATION
  Report Type: Report from Study
  Country: US (occurrence: US)
  Receive Date: 20240413
  Receipt Date: 20251130
  Transmission Date: 20260118
  Serious: Yes (Other)
  Sender: ABBVIE
  Company Number: US-ABBVIE-5713438

PATIENT
  Age: 76 Year
  Sex: Female

DRUGS (2)
  1. RINVOQ [Suspect]
     Active Substance: UPADACITINIB
     Indication: Rheumatoid arthritis
     Dosage: STRENGTH 15 MG
     Route: 048
     Dates: start: 2020, end: 2024
  2. RINVOQ [Suspect]
     Active Substance: UPADACITINIB
     Indication: Rheumatoid arthritis
     Dosage: STRENGTH 15 MG
     Route: 048
     Dates: start: 2024

REACTIONS (5)
  - Shoulder arthroplasty [Unknown]
  - Peripheral swelling [Recovered/Resolved]
  - Pain in extremity [Recovered/Resolved]
  - Spinal operation [Unknown]
  - Rheumatoid arthritis [Unknown]

NARRATIVE: CASE EVENT DATE: 20240101
